FAERS Safety Report 15536392 (Version 1)
Quarter: 2018Q4

REPORT INFORMATION
  Report Type: Spontaneous
  Country: DE (occurrence: DE)
  Receive Date: 20181022
  Receipt Date: 20181022
  Transmission Date: 20190205
  Serious: Yes (Other)
  Sender: FDA-Public Use
  Company Number: DE-SA-2018SA287164

PATIENT

DRUGS (1)
  1. DUPIXENT [Suspect]
     Active Substance: DUPILUMAB
     Route: 058

REACTIONS (6)
  - Lymph node pain [Unknown]
  - Pruritus [Recovered/Resolved]
  - Erythema [Recovered/Resolved]
  - Haemorrhage [Unknown]
  - Lymphadenopathy [Unknown]
  - Fatigue [Unknown]

NARRATIVE: CASE EVENT DATE: 20181016
